FAERS Safety Report 19597718 (Version 1)
Quarter: 2021Q3

REPORT INFORMATION
  Report Type: Spontaneous
  Country: US (occurrence: US)
  Receive Date: 20210722
  Receipt Date: 20210722
  Transmission Date: 20211014
  Serious: No
  Sender: FDA-Public Use
  Company Number: None

PATIENT
  Age: 63 Year
  Sex: Male

DRUGS (20)
  1. HUMIRA [Suspect]
     Active Substance: ADALIMUMAB
     Indication: PSORIATIC ARTHROPATHY
     Dosage: ?          OTHER FREQUENCY:EVERY OTHER WEEK;?
     Route: 058
  2. DULOXETINE. [Concomitant]
     Active Substance: DULOXETINE
  3. KETOROLAC [Concomitant]
     Active Substance: KETOROLAC TROMETHAMINE
  4. LAMOTRIGINE. [Concomitant]
     Active Substance: LAMOTRIGINE
  5. METAXALONE. [Concomitant]
     Active Substance: METAXALONE
  6. TAMSULOSIN [Concomitant]
     Active Substance: TAMSULOSIN
  7. TIZANIDINE. [Concomitant]
     Active Substance: TIZANIDINE
  8. DIAZEPAM. [Concomitant]
     Active Substance: DIAZEPAM
  9. DICLOFENAC [Concomitant]
     Active Substance: DICLOFENAC
  10. PREDNISONE. [Concomitant]
     Active Substance: PREDNISONE
  11. ZALEPLON. [Concomitant]
     Active Substance: ZALEPLON
  12. ATORVASTATIN [Concomitant]
     Active Substance: ATORVASTATIN
  13. QUETIAPINE. [Concomitant]
     Active Substance: QUETIAPINE
  14. ZOLPIDEM [Concomitant]
     Active Substance: ZOLPIDEM TARTRATE
  15. LOSARTAN. [Concomitant]
     Active Substance: LOSARTAN
  16. TRAMADOL. [Concomitant]
     Active Substance: TRAMADOL
  17. CARISOPRODOL. [Concomitant]
     Active Substance: CARISOPRODOL
  18. LOVASTATIN. [Concomitant]
     Active Substance: LOVASTATIN
  19. BUSPIRONE [Concomitant]
     Active Substance: BUSPIRONE HYDROCHLORIDE
  20. PANTOPRAZOLE [Concomitant]
     Active Substance: PANTOPRAZOLE

REACTIONS (2)
  - Arthropathy [None]
  - Condition aggravated [None]

NARRATIVE: CASE EVENT DATE: 20210721
